FAERS Safety Report 25408671 (Version 1)
Quarter: 2025Q2

REPORT INFORMATION
  Report Type: Spontaneous
  Country: GB (occurrence: GB)
  Receive Date: 20250606
  Receipt Date: 20250606
  Transmission Date: 20250716
  Serious: Yes (Other)
  Sender: ELI LILLY AND COMPANY
  Company Number: GB-MHRA-TPP47660366C10436588YC1748615373387

PATIENT
  Age: 35 Year
  Sex: Male
  Weight: 113 kg

DRUGS (3)
  1. LYUMJEV [Suspect]
     Active Substance: INSULIN LISPRO-AABC
     Indication: Ill-defined disorder
     Route: 065
     Dates: start: 20231205
  2. TOUJEO [Concomitant]
     Active Substance: INSULIN GLARGINE
     Indication: Ill-defined disorder
     Route: 065
     Dates: start: 20240325
  3. NOVORAPID [Concomitant]
     Active Substance: INSULIN ASPART
     Indication: Ill-defined disorder
     Route: 065
     Dates: start: 20250317

REACTIONS (2)
  - Dizziness [Recovered/Resolved]
  - Drug hypersensitivity [Unknown]
